FAERS Safety Report 7458897-7 (Version None)
Quarter: 2011Q2

REPORT INFORMATION
  Report Type: 
  Country: None (occurrence: None)
  Receive Date: 20110504
  Receipt Date: 20110407
  Transmission Date: 20111010
  Serious: Yes (Hospitalization, Other)
  Sender: FDA-Public Use
  Company Number: DE-GENENTECH-317986

PATIENT
  Age: 82 Year
  Sex: Male

DRUGS (1)
  1. LUCENTIS [Suspect]
     Indication: AGE-RELATED MACULAR DEGENERATION
     Dosage: UNK
     Route: 031
     Dates: start: 20081219

REACTIONS (7)
  - LUNG INFECTION [None]
  - WEIGHT DECREASED [None]
  - LOWER RESPIRATORY TRACT INFECTION VIRAL [None]
  - INFECTION [None]
  - HEART RATE INCREASED [None]
  - FLUID RETENTION [None]
  - LISTLESS [None]
